FAERS Safety Report 4963842-X (Version None)
Quarter: 2006Q1

REPORT INFORMATION
  Report Type: 
  Country: None (occurrence: None)
  Receive Date: 20060330
  Receipt Date: 20060314
  Transmission Date: 20060701
  Serious: Yes (Death, Hospitalization)
  Sender: FDA-Public Use
  Company Number: DSA_27920_2006

PATIENT
  Age: 95 Year
  Sex: Male

DRUGS (9)
  1. ENALAPRIL MALEATE [Suspect]
     Dosage: 10 MG QD PO
     Route: 048
     Dates: start: 20050615, end: 20060125
  2. FUROSEMIDE [Concomitant]
  3. THEOPHYLLINE [Concomitant]
  4. ASTRA [Concomitant]
  5. PAROXETINE HCL [Concomitant]
  6. ACETAMINOPHEN [Concomitant]
  7. ENOXAPARIN SODIUM [Concomitant]
  8. PRISTINAMYCIN [Concomitant]
  9. FLUTICASONE PROPIONATE [Concomitant]

REACTIONS (12)
  - ANGIONEUROTIC OEDEMA [None]
  - CREATININE RENAL CLEARANCE DECREASED [None]
  - DRUG INEFFECTIVE [None]
  - DYSPNOEA [None]
  - FATIGUE [None]
  - GLOSSODYNIA [None]
  - JUGULAR VEIN DISTENSION [None]
  - LOSS OF CONSCIOUSNESS [None]
  - OXYGEN SATURATION DECREASED [None]
  - RHONCHI [None]
  - TONGUE DISCOLOURATION [None]
  - TONGUE OEDEMA [None]
